FAERS Safety Report 5140705-0 (Version None)
Quarter: 2006Q4

REPORT INFORMATION
  Report Type: 
  Country: None (occurrence: None)
  Receive Date: 20061024
  Receipt Date: 20061012
  Transmission Date: 20070319
  Serious: Yes (Life-Threatening)
  Sender: FDA-Public Use
  Company Number: HQWYE009312OCT06

PATIENT
  Age: 49 Year
  Sex: Male

DRUGS (1)
  1. PANTOZOL (PANTOZOL, TABLET, DELAYED RELEASE) [Suspect]
     Indication: GASTROOESOPHAGEAL REFLUX DISEASE
     Dosage: 40 MG 1X PER 1 DAY
     Route: 048
     Dates: start: 20000101, end: 20050101

REACTIONS (1)
  - CARCINOID TUMOUR OF THE STOMACH [None]
